FAERS Safety Report 16851916 (Version 1)
Quarter: 2019Q3

REPORT INFORMATION
  Report Type: Spontaneous
  Country: US (occurrence: US)
  Receive Date: 20190925
  Receipt Date: 20190925
  Transmission Date: 20191005
  Serious: No
  Sender: FDA-Public Use
  Company Number: US-SCILEX PHARMACEUTICALS INC.-2019SCX00067

PATIENT
  Age: 64 Year
  Sex: Female
  Weight: 77.1 kg

DRUGS (10)
  1. LYRICA [Concomitant]
     Active Substance: PREGABALIN
     Indication: POST HERPETIC NEURALGIA
     Dosage: 50 MG, 1X/DAY IN THE MORNING
  2. LYRICA [Concomitant]
     Active Substance: PREGABALIN
     Dosage: 100 MG, 1X/DAY AT NIGHT
  3. OMEPRAZOLE. [Concomitant]
     Active Substance: OMEPRAZOLE
  4. MAGNESIUM [Concomitant]
     Active Substance: MAGNESIUM
     Indication: IRRITABLE BOWEL SYNDROME
  5. CBD SALVE [Concomitant]
     Route: 061
  6. SYNTHROID [Concomitant]
     Active Substance: LEVOTHYROXINE SODIUM
     Indication: HYPOTHYROIDISM
     Dosage: 75 ?G, 1X/DAY
  7. PRILOSEC [Concomitant]
     Active Substance: OMEPRAZOLE MAGNESIUM
     Indication: GASTROOESOPHAGEAL REFLUX DISEASE
  8. ZTLIDO [Suspect]
     Active Substance: LIDOCAINE
     Indication: POST HERPETIC NEURALGIA
     Dosage: 1 DOSAGE UNITS, 1X/DAY
     Route: 061
     Dates: start: 20190808, end: 20190812
  9. MULTIVITAMIN [Concomitant]
     Active Substance: VITAMINS
  10. VITAMIN D [Concomitant]
     Active Substance: VITAMIN D NOS

REACTIONS (2)
  - Application site rash [Recovered/Resolved]
  - Rash erythematous [Recovered/Resolved]

NARRATIVE: CASE EVENT DATE: 20190812
